FAERS Safety Report 5007650-2 (Version None)
Quarter: 2006Q2

REPORT INFORMATION
  Report Type: 
  Country: None (occurrence: None)
  Receive Date: 20060522
  Receipt Date: 20060308
  Transmission Date: 20061013
  Serious: Yes (Hospitalization)
  Sender: FDA-Public Use
  Company Number: PHHO2006JP04136

PATIENT
  Age: 59 Year
  Sex: Male

DRUGS (3)
  1. IMMUNE GLOBULIN INTRAVENOUS (HUMAN) [Concomitant]
     Indication: HYPOGAMMAGLOBULINAEMIA
  2. CALBLOCK [Suspect]
     Indication: HYPERTENSION
     Dates: start: 20040722, end: 20050407
  3. DIOVAN [Suspect]
     Indication: HYPERTENSION
     Dosage: 80 MG, QD
     Route: 048
     Dates: start: 20030116, end: 20050421

REACTIONS (4)
  - DYSPHAGIA [None]
  - LICHEN PLANUS [None]
  - LIP DISORDER [None]
  - TONGUE DISORDER [None]
